FAERS Safety Report 24631308 (Version 2)
Quarter: 2024Q4

REPORT INFORMATION
  Report Type: Report from Study
  Country: US (occurrence: US)
  Receive Date: 20241118
  Receipt Date: 20241126
  Transmission Date: 20250115
  Serious: Yes (Congenital Anomaly, Other)
  Sender: VIIV
  Company Number: US-ViiV Healthcare-US2024GSK143270

PATIENT

DRUGS (2)
  1. ZIDOVUDINE [Suspect]
     Active Substance: ZIDOVUDINE
     Indication: HIV infection
     Dosage: 500 MG, QD
     Route: 064
     Dates: start: 19941224
  2. ZIDOVUDINE [Suspect]
     Active Substance: ZIDOVUDINE
     Indication: HIV infection
     Dosage: 455 MG, QD
     Route: 064
     Dates: start: 19950504

REACTIONS (6)
  - Genitalia external ambiguous [Unknown]
  - Congenital syphilis [Unknown]
  - Hypoglycaemia neonatal [Unknown]
  - Jaundice neonatal [Unknown]
  - Low birth weight baby [Unknown]
  - Foetal exposure during pregnancy [Unknown]

NARRATIVE: CASE EVENT DATE: 19950504
